FAERS Safety Report 9869712 (Version 1)
Quarter: 2014Q1

REPORT INFORMATION
  Report Type: Spontaneous
  Country: US (occurrence: US)
  Receive Date: 20140205
  Receipt Date: 20140205
  Transmission Date: 20141002
  Serious: No
  Sender: FDA-Public Use
  Company Number: US-GLAXOSMITHKLINE-A1005097A

PATIENT
  Age: 38 Year
  Sex: Male

DRUGS (6)
  1. ARIXTRA [Suspect]
     Indication: THROMBOSIS
     Dosage: 1INJ PER DAY
     Route: 058
     Dates: start: 20121004
  2. METHADONE [Concomitant]
  3. PROCHLORPERAZINE [Concomitant]
  4. AMLODIPINE [Concomitant]
  5. LEVOFLOXACIN [Concomitant]
  6. XARELTO [Concomitant]

REACTIONS (2)
  - Application site reaction [Not Recovered/Not Resolved]
  - Product quality issue [Unknown]
